FAERS Safety Report 8852135 (Version 1)
Quarter: 2012Q4

REPORT INFORMATION
  Report Type: Spontaneous
  Country: DE (occurrence: None)
  Receive Date: 20121017
  Receipt Date: 20121017
  Transmission Date: 20130627
  Serious: Yes (Hospitalization, Other)
  Sender: FDA-Public Use
  Company Number: 2012MA012147

PATIENT
  Age: 43 Year
  Sex: Male

DRUGS (1)
  1. CARBAMAZEPINE [Suspect]
     Indication: EPILEPSY

REACTIONS (12)
  - Deafness [None]
  - Vertigo [None]
  - Hypoacusis [None]
  - General physical health deterioration [None]
  - Confabulation [None]
  - Deafness neurosensory [None]
  - Nystagmus [None]
  - Tremor [None]
  - Ataxia [None]
  - Gait disturbance [None]
  - Partial seizures [None]
  - Overdose [None]
